FAERS Safety Report 7521670-5 (Version None)
Quarter: 2011Q2

REPORT INFORMATION
  Report Type: 
  Country: None (occurrence: None)
  Receive Date: 20110603
  Receipt Date: 20110519
  Transmission Date: 20111010
  Serious: No
  Sender: FDA-Public Use
  Company Number: US-B.I. PHARMACEUTICALS,INC./RIDGEFIELD-2011-BP-13575BP

PATIENT
  Age: 51 Year
  Sex: Female

DRUGS (2)
  1. MIRAPEX [Suspect]
     Indication: RESTLESS LEGS SYNDROME
     Dosage: 0.375 MG
     Route: 048
     Dates: start: 20011101
  2. CLARITIN-D 24 HOUR [Concomitant]
     Indication: MULTIPLE ALLERGIES
     Route: 048

REACTIONS (1)
  - TINNITUS [None]
